FAERS Safety Report 9609188 (Version 2)
Quarter: 2013Q4

REPORT INFORMATION
  Report Type: Spontaneous
  Country: RU (occurrence: RU)
  Receive Date: 20131009
  Receipt Date: 20131009
  Transmission Date: 20140711
  Serious: Yes (Hospitalization, Disabling, Other)
  Sender: FDA-Public Use
  Company Number: RU-ABBVIE-13P-251-1116211-00

PATIENT
  Age: 24 Year
  Sex: Male
  Weight: 58 kg

DRUGS (1)
  1. HUMIRA [Suspect]
     Indication: CROHN^S DISEASE
     Dates: start: 20130121, end: 20130624

REACTIONS (8)
  - Polyserositis [Unknown]
  - Tuberculosis [Unknown]
  - Lupus-like syndrome [Unknown]
  - Pyrexia [Unknown]
  - Dyspnoea [Unknown]
  - Pleural effusion [Unknown]
  - Pericardial effusion [Unknown]
  - Pericarditis [Unknown]
